FAERS Safety Report 20868509 (Version 1)
Quarter: 2022Q2

REPORT INFORMATION
  Report Type: Report from Study
  Country: US (occurrence: US)
  Receive Date: 20220524
  Receipt Date: 20220524
  Transmission Date: 20220720
  Serious: No
  Sender: FDA-Public Use
  Company Number: US-NOVARTISTESTPH-NVSC2022US119087

PATIENT
  Sex: Male

DRUGS (1)
  1. ILARIS [Suspect]
     Active Substance: CANAKINUMAB
     Indication: PFAPA syndrome
     Dosage: 135 MG, EVERY 4 WEEKS
     Route: 058
     Dates: start: 20210319

REACTIONS (1)
  - Inappropriate schedule of product administration [Unknown]
